FAERS Safety Report 8262052-0 (Version None)
Quarter: 2012Q2

REPORT INFORMATION
  Report Type: 
  Country: None (occurrence: None)
  Receive Date: 20120405
  Receipt Date: 20120329
  Transmission Date: 20120825
  Serious: Yes (Other)
  Sender: FDA-Public Use
  Company Number: PHHY2012JP019100

PATIENT
  Age: 68 Year
  Sex: Female

DRUGS (5)
  1. EXFORGE [Suspect]
     Indication: HYPERTENSION
     Dosage: 22 DF, DAILY
     Route: 048
  2. LIPITOR [Suspect]
     Dosage: 22 DF, DAILY
     Route: 048
  3. LASIX [Suspect]
     Dosage: 22 DF, DAILY
     Route: 048
  4. AMARYL [Suspect]
     Dosage: 22 DF, DAILY
     Route: 048
  5. DIOVAN [Suspect]
     Indication: HYPERTENSION
     Dosage: 22 DF (1760 MG) DAILY
     Route: 048

REACTIONS (2)
  - MULTIPLE DRUG OVERDOSE [None]
  - BLOOD PRESSURE DECREASED [None]
